FAERS Safety Report 19889687 (Version 1)
Quarter: 2021Q3

REPORT INFORMATION
  Report Type: Spontaneous
  Country: US (occurrence: US)
  Receive Date: 20210928
  Receipt Date: 20210928
  Transmission Date: 20211014
  Serious: Yes (Other)
  Sender: FDA-Public Use
  Company Number: None

PATIENT
  Age: 14 Year
  Sex: Male

DRUGS (3)
  1. TRIMETHOPRIM?SULFAMETHOXAZOLE [Suspect]
     Active Substance: SULFAMETHOXAZOLE\TRIMETHOPRIM
     Indication: CELLULITIS
     Dosage: ?          OTHER STRENGTH:DOUBLE STRENGTH;QUANTITY:1 TABLET(S);?
     Route: 048
     Dates: start: 20210609, end: 20210618
  2. ALBUTEROL. [Concomitant]
     Active Substance: ALBUTEROL
  3. EPIPEN [Concomitant]
     Active Substance: EPINEPHRINE

REACTIONS (3)
  - Drug reaction with eosinophilia and systemic symptoms [None]
  - Face oedema [None]
  - Liver function test increased [None]

NARRATIVE: CASE EVENT DATE: 20210619
